FAERS Safety Report 4752273-3 (Version None)
Quarter: 2005Q3

REPORT INFORMATION
  Report Type: 
  Country: None (occurrence: None)
  Receive Date: 20050825
  Receipt Date: 20050818
  Transmission Date: 20060218
  Serious: Yes (Other)
  Sender: FDA-Public Use
  Company Number: PHBS2005ES12033

PATIENT
  Age: 40 Year
  Sex: Male

DRUGS (2)
  1. GLEEVEC [Suspect]
     Route: 065
     Dates: start: 20050728
  2. PANTOPRAZOLE [Concomitant]

REACTIONS (3)
  - CYTOMEGALOVIRUS INFECTION [None]
  - DIPLOPIA [None]
  - PARESIS CRANIAL NERVE [None]
